FAERS Safety Report 12916663 (Version 1)
Quarter: 2016Q4

REPORT INFORMATION
  Report Type: Spontaneous
  Country: US (occurrence: US)
  Receive Date: 20161107
  Receipt Date: 20161107
  Transmission Date: 20170207
  Serious: No
  Sender: FDA-Public Use
  Company Number: US-JAZZ-2016-US-017176

PATIENT
  Sex: Female

DRUGS (7)
  1. MOTRIN IB [Concomitant]
     Active Substance: IBUPROFEN
  2. SINGULAIR [Concomitant]
     Active Substance: MONTELUKAST SODIUM
  3. BUDESONIDE EC [Concomitant]
     Active Substance: BUDESONIDE
  4. DICYCLOMINE [Concomitant]
     Active Substance: DICYCLOMINE HYDROCHLORIDE
  5. NAPROSYN EC [Concomitant]
  6. NUVIGIL [Concomitant]
     Active Substance: ARMODAFINIL
  7. XYREM [Suspect]
     Active Substance: SODIUM OXYBATE
     Indication: NARCOLEPSY
     Dosage: 2.5 G, BID
     Route: 048
     Dates: start: 201608

REACTIONS (7)
  - Hypoaesthesia oral [Unknown]
  - Road traffic accident [Unknown]
  - Headache [Not Recovered/Not Resolved]
  - Motion sickness [Not Recovered/Not Resolved]
  - Concussion [Unknown]
  - Sensory loss [Not Recovered/Not Resolved]
  - Dysgeusia [Unknown]

NARRATIVE: CASE EVENT DATE: 2016
